FAERS Safety Report 7071293-X (Version None)
Quarter: 2010Q4

REPORT INFORMATION
  Report Type: 
  Country: None (occurrence: None)
  Receive Date: 20101029
  Receipt Date: 20100826
  Transmission Date: 20110411
  Serious: No
  Sender: FDA-Public Use
  Company Number: A0877024A

PATIENT
  Age: 79 Year
  Sex: Female

DRUGS (2)
  1. FLOVENT [Suspect]
     Indication: ASTHMA
     Dosage: 2PUFF TWICE PER DAY
     Route: 055
  2. MOBIC [Concomitant]

REACTIONS (3)
  - PRODUCT QUALITY ISSUE [None]
  - THERMAL BURN [None]
  - TONGUE DISORDER [None]
